FAERS Safety Report 11124492 (Version 1)
Quarter: 2015Q2

REPORT INFORMATION
  Report Type: Spontaneous
  Country: US (occurrence: None)
  Receive Date: 20150519
  Receipt Date: 20150519
  Transmission Date: 20150821
  Serious: Yes (Disabling)
  Sender: FDA-Public Use
  Company Number: None

PATIENT
  Age: 58 Year
  Sex: Female

DRUGS (12)
  1. ATORVISTATIN [Concomitant]
  2. CENTRUM VITAMINS LIQUID [Concomitant]
     Active Substance: VITAMINS
  3. LEVOFLOXACIN 500MG AUROBINDO [Suspect]
     Active Substance: LEVOFLOXACIN
     Indication: DIVERTICULITIS
     Dosage: 1 TABLET A DAY FOR 7 DAYS
     Route: 048
     Dates: start: 20150427, end: 20150430
  4. GLUCOSAMINE/CHONDROITIN /08437701/ [Concomitant]
     Active Substance: CHONDROITIN SULFATE (BOVINE)\GLUCOSAMINE SULFATE
  5. TWYNSTA [Concomitant]
     Active Substance: AMLODIPINE BESYLATE\TELMISARTAN
  6. MAGNESIUM [Concomitant]
     Active Substance: MAGNESIUM
  7. BUPROPRION [Concomitant]
     Active Substance: BUPROPION
  8. VITAMIN E [Concomitant]
     Active Substance: .ALPHA.-TOCOPHEROL
  9. VITAMIN D [Concomitant]
     Active Substance: CHOLECALCIFEROL
  10. VALOCYCLOVIR [Concomitant]
  11. FISH OIL [Concomitant]
     Active Substance: FISH OIL
  12. PROBIOTIC [Concomitant]
     Active Substance: PROBIOTICS NOS

REACTIONS (5)
  - Joint swelling [None]
  - Toxicity to various agents [None]
  - Gait disturbance [None]
  - Musculoskeletal pain [None]
  - Arthralgia [None]

NARRATIVE: CASE EVENT DATE: 20150427
